FAERS Safety Report 5512581-5 (Version None)
Quarter: 2007Q4

REPORT INFORMATION
  Report Type: 
  Country: None (occurrence: None)
  Receive Date: 20071112
  Receipt Date: 20071101
  Transmission Date: 20080405
  Serious: Yes (Hospitalization)
  Sender: FDA-Public Use
  Company Number: JP-JNJFOC-20061001537

PATIENT
  Sex: Male
  Weight: 67 kg

DRUGS (23)
  1. REMICADE [Suspect]
     Route: 042
  2. REMICADE [Suspect]
     Route: 042
  3. REMICADE [Suspect]
     Route: 042
  4. REMICADE [Suspect]
     Route: 042
  5. REMICADE [Suspect]
     Route: 042
  6. REMICADE [Suspect]
     Route: 042
  7. REMICADE [Suspect]
     Route: 042
  8. REMICADE [Suspect]
     Dosage: UNSPECIFIED DATE
     Route: 042
  9. REMICADE [Suspect]
     Dosage: UNSPECIFIED DATE
     Route: 042
  10. REMICADE [Suspect]
     Dosage: UNSPECIFIED DATE
     Route: 042
  11. REMICADE [Suspect]
     Dosage: UNSPECIFIED DATE
     Route: 042
  12. REMICADE [Suspect]
     Indication: RHEUMATOID ARTHRITIS
     Dosage: UNSPECIFIED DATE
     Route: 042
  13. PREDONINE [Suspect]
     Indication: DRUG USE FOR UNKNOWN INDICATION
     Route: 048
  14. RHEUMATREX [Suspect]
     Indication: RHEUMATOID ARTHRITIS
     Route: 048
  15. HARNAL [Suspect]
     Indication: DRUG USE FOR UNKNOWN INDICATION
     Route: 048
  16. DEPAS [Suspect]
     Indication: DRUG USE FOR UNKNOWN INDICATION
     Route: 048
  17. MUCODYNE [Suspect]
     Indication: DRUG USE FOR UNKNOWN INDICATION
     Route: 048
  18. AZULFIDINE EN-TABS [Concomitant]
     Indication: RHEUMATOID ARTHRITIS
     Route: 048
  19. MOHRUS TAPE [Concomitant]
     Indication: RHEUMATOID ARTHRITIS
     Dosage: ROUTE OF ADMINISTRATION REPORTED AS OD
  20. FOLIAMIN [Concomitant]
     Route: 048
  21. MUCOSTA [Concomitant]
     Route: 048
  22. MAGLAX [Concomitant]
     Route: 048
  23. BOIOGITO [Concomitant]
     Route: 048

REACTIONS (1)
  - ERYTHEMA [None]
